FAERS Safety Report 19773196 (Version 2)
Quarter: 2021Q3

REPORT INFORMATION
  Report Type: Spontaneous
  Country: US (occurrence: US)
  Receive Date: 20210901
  Receipt Date: 20210903
  Transmission Date: 20211014
  Serious: Yes (Hospitalization)
  Sender: FDA-Public Use
  Company Number: US-ASTRAZENECA-2021A703618

PATIENT
  Age: 18776 Day
  Sex: Female
  Weight: 158.8 kg

DRUGS (8)
  1. FASENRA [Suspect]
     Active Substance: BENRALIZUMAB
     Indication: PNEUMONIA
     Dosage: 30MG/ML EVERY EIGHT WEEKS
     Route: 058
     Dates: start: 202106
  2. FASENRA [Suspect]
     Active Substance: BENRALIZUMAB
     Indication: MULTIPLE ALLERGIES
     Dosage: 30MG/ML EVERY EIGHT WEEKS
     Route: 058
     Dates: start: 202106
  3. FASENRA [Concomitant]
     Active Substance: BENRALIZUMAB
     Indication: MULTIPLE ALLERGIES
     Dosage: EVERY 4 WEEKS FOR 3 MONTHS THEN EVERY 8
     Route: 058
     Dates: end: 202106
  4. FASENRA [Concomitant]
     Active Substance: BENRALIZUMAB
     Indication: ASTHMA
     Dosage: EVERY 4 WEEKS FOR 3 MONTHS THEN EVERY 8
     Route: 058
     Dates: end: 202106
  5. WATER PILL [Concomitant]
     Active Substance: UNSPECIFIED INGREDIENT
     Dates: start: 2015
  6. FASENRA [Concomitant]
     Active Substance: BENRALIZUMAB
     Indication: PNEUMONIA
     Dosage: EVERY 4 WEEKS FOR 3 MONTHS THEN EVERY 8
     Route: 058
     Dates: end: 202106
  7. PREDNISONE. [Concomitant]
     Active Substance: PREDNISONE
     Dates: start: 2015
  8. FASENRA [Suspect]
     Active Substance: BENRALIZUMAB
     Indication: ASTHMA
     Dosage: 30MG/ML EVERY EIGHT WEEKS
     Route: 058
     Dates: start: 202106

REACTIONS (9)
  - Feeling hot [Recovering/Resolving]
  - Fluid retention [Recovering/Resolving]
  - Erythema [Recovering/Resolving]
  - Off label use [Unknown]
  - Skin weeping [Recovering/Resolving]
  - Weight increased [Unknown]
  - Gait disturbance [Unknown]
  - Incorrect dose administered by device [Unknown]
  - Device leakage [Unknown]

NARRATIVE: CASE EVENT DATE: 20210807
